FAERS Safety Report 15922977 (Version 1)
Quarter: 2019Q1

REPORT INFORMATION
  Report Type: Spontaneous
  Country: US (occurrence: US)
  Receive Date: 20190205
  Receipt Date: 20190205
  Transmission Date: 20190417
  Serious: Yes (Disabling)
  Sender: FDA-Public Use
  Company Number: None

PATIENT
  Age: 72 Year
  Sex: Male
  Weight: 76.5 kg

DRUGS (18)
  1. WARFARIN [Concomitant]
     Active Substance: WARFARIN
  2. METFORMIN [Concomitant]
     Active Substance: METFORMIN HYDROCHLORIDE
  3. NASONEX [Concomitant]
     Active Substance: MOMETASONE FUROATE
  4. LIQUID VITAMINS UNDISCLOSED USED IN THE PAST PRIOR TO M [Concomitant]
     Active Substance: VITAMINS
  5. RESTATES [Concomitant]
  6. CILOSTAZOL. [Suspect]
     Active Substance: CILOSTAZOL
     Indication: ARTERIAL OCCLUSIVE DISEASE
     Dosage: ?          QUANTITY:2 TABLET(S);?
     Route: 048
     Dates: start: 20190129, end: 20190203
  7. SIMVASTATIN. [Concomitant]
     Active Substance: SIMVASTATIN
  8. VISIVITE [Concomitant]
  9. OMEPRAZOLE. [Concomitant]
     Active Substance: OMEPRAZOLE
  10. ASPIRIN. [Concomitant]
     Active Substance: ASPIRIN
  11. METRONIDAZOLE. [Concomitant]
     Active Substance: METRONIDAZOLE
  12. COQ 10 [Concomitant]
     Active Substance: UBIDECARENONE
  13. SSS LIQUID [Concomitant]
  14. LISINOPRIL. [Concomitant]
     Active Substance: LISINOPRIL
  15. ALBUTEROL. [Concomitant]
     Active Substance: ALBUTEROL
  16. BUPROPION. [Concomitant]
     Active Substance: BUPROPION
  17. PATADAY [Concomitant]
     Active Substance: OLOPATADINE HYDROCHLORIDE
  18. VITAMIN D [Concomitant]
     Active Substance: CHOLECALCIFEROL

REACTIONS (8)
  - Blood pressure systolic increased [None]
  - Angina pectoris [None]
  - Palpitations [None]
  - Heart rate irregular [None]
  - Diarrhoea [None]
  - Cluster headache [None]
  - Oropharyngeal pain [None]
  - Pain in jaw [None]

NARRATIVE: CASE EVENT DATE: 20190129
